FAERS Safety Report 8153213-X (Version None)
Quarter: 2012Q1

REPORT INFORMATION
  Report Type: 
  Country: None (occurrence: None)
  Receive Date: 20120215
  Receipt Date: 20120201
  Transmission Date: 20120608
  Serious: Yes (Other)
  Sender: FDA-Public Use
  Company Number: 1000027723

PATIENT
  Sex: Female

DRUGS (6)
  1. SYNTHROID (LEVOTHYROXINE SODIUM) (LEVOTHYROXINE SODIUM) [Concomitant]
  2. PERCOCET (OXYCODONE, ACETAMINOPHEN) (OXYCODONE, ACETAMINOPHEN) [Concomitant]
  3. VIIBRYD [Suspect]
     Indication: DEPRESSION
     Dosage: 20 MG (20 MG, 1 IN 1 D), ORAL
     Route: 048
     Dates: start: 20120127, end: 20120129
  4. KLONOPIN (CLONZEPAM) (CLONAZEPAM) [Concomitant]
  5. GABAPENTIN [Concomitant]
  6. VIIBRYD [Suspect]
     Indication: DEPRESSION
     Dosage: 20 MG (20 MG, 1 IN 1 D), ORAL
     Route: 048
     Dates: start: 20120127, end: 20120129

REACTIONS (6)
  - SUICIDAL IDEATION [None]
  - INSOMNIA [None]
  - ANGER [None]
  - CRYING [None]
  - SCREAMING [None]
  - CONDITION AGGRAVATED [None]
